FAERS Safety Report 26196540 (Version 1)
Quarter: 2025Q4

REPORT INFORMATION
  Report Type: Spontaneous
  Country: US (occurrence: US)
  Receive Date: 20251224
  Receipt Date: 20251224
  Transmission Date: 20260118
  Serious: Yes (Other)
  Sender: UNILEVER
  Company Number: US-Unilever-2190690

PATIENT
  Sex: Male

DRUGS (1)
  1. AXE APOLLO ANTIPERSPIRANT AND DEODORANT [Suspect]
     Active Substance: ALUMINUM ZIRCONIUM TETRACHLOROHYDREX GLY
     Dates: start: 20251127

REACTIONS (5)
  - Application site pain [Unknown]
  - Application site burn [Unknown]
  - Application site rash [Unknown]
  - Application site erythema [Unknown]
  - Application site pruritus [Unknown]

NARRATIVE: CASE EVENT DATE: 20251127
